FAERS Safety Report 4730988-0 (Version None)
Quarter: 2005Q3

REPORT INFORMATION
  Report Type: 
  Country: None (occurrence: None)
  Receive Date: 20050719
  Receipt Date: 20040720
  Transmission Date: 20060218
  Serious: Yes (Other)
  Sender: FDA-Public Use
  Company Number: 201709

PATIENT
  Age: 50 Year
  Sex: Female
  Weight: 81.6475 kg

DRUGS (9)
  1. AVONEX [Suspect]
     Indication: MULTIPLE SCLEROSIS
     Dosage: 30 UG;QW;IM
     Route: 030
     Dates: end: 20030101
  2. AVONEX [Suspect]
     Indication: MULTIPLE SCLEROSIS
     Dosage: 30 UG;QW;IM
     Route: 030
     Dates: start: 20030101
  3. ZOLOFT [Concomitant]
  4. BACLOFEN [Concomitant]
  5. ZYPREXA [Concomitant]
  6. DETROL [Concomitant]
  7. OXYBUTYNIN [Concomitant]
  8. NEURONTIN [Concomitant]
  9. OXYTROL [Concomitant]

REACTIONS (4)
  - GRAND MAL CONVULSION [None]
  - HERPES ZOSTER [None]
  - MEMORY IMPAIRMENT [None]
  - MULTIPLE SCLEROSIS [None]
